FAERS Safety Report 22068317 (Version 1)
Quarter: 2023Q1

REPORT INFORMATION
  Report Type: Spontaneous
  Country: FR (occurrence: FR)
  Receive Date: 20230307
  Receipt Date: 20230307
  Transmission Date: 20230418
  Serious: Yes (Life-Threatening)
  Sender: FDA-Public Use
  Company Number: None

PATIENT
  Age: 68 Year
  Sex: Female
  Weight: 69 kg

DRUGS (3)
  1. MITOMYCIN [Suspect]
     Active Substance: MITOMYCIN
     Indication: Anal squamous cell carcinoma
     Dosage: STRENGTH: 10 MG
     Route: 043
     Dates: start: 20220802, end: 20220802
  2. XELODA [Suspect]
     Active Substance: CAPECITABINE
     Indication: Anal squamous cell carcinoma
     Dosage: 1500 MGX2/D ON RADIOTHERAPY DAYS
     Dates: start: 202208
  3. MITOMYCIN [Suspect]
     Active Substance: MITOMYCIN
     Indication: Anal squamous cell carcinoma
     Dosage: STRENGTH: 10 MG
     Route: 043
     Dates: start: 20220829, end: 20220829

REACTIONS (2)
  - Pulmonary arterial hypertension [Recovered/Resolved with Sequelae]
  - Pulmonary veno-occlusive disease [Recovered/Resolved with Sequelae]

NARRATIVE: CASE EVENT DATE: 20221201
